FAERS Safety Report 8295443-2 (Version None)
Quarter: 2012Q2

REPORT INFORMATION
  Report Type: 
  Country: None (occurrence: None)
  Receive Date: 20120418
  Receipt Date: 20120411
  Transmission Date: 20120825
  Serious: Yes (Hospitalization, Other)
  Sender: FDA-Public Use
  Company Number: US-ELI_LILLY_AND_COMPANY-US201009004875

PATIENT
  Sex: Female

DRUGS (7)
  1. CARBIDOPA [Concomitant]
     Indication: PARKINSON'S DISEASE
  2. FORTEO [Suspect]
     Dosage: 20 UG, QD
     Route: 065
  3. FORTEO [Suspect]
     Indication: OSTEOPOROSIS
     Dosage: 20 UG, DAILY (1/D)
     Route: 065
     Dates: start: 20100801
  4. FORTEO [Suspect]
     Dosage: 20 UG, QD
     Route: 065
  5. URSODIOL [Concomitant]
     Indication: LIVER DISORDER
  6. FORTEO [Suspect]
     Dosage: 20 UG, QD
     Route: 065
  7. FORTEO [Suspect]
     Dosage: 20 UG, DAILY (1/D)
     Route: 065

REACTIONS (7)
  - NEOPLASM MALIGNANT [None]
  - REMOVAL OF INERT MATTER FROM SKIN OR SUBCUTANEOUS TISSUE [None]
  - INJECTION SITE HAEMATOMA [None]
  - HEPATIC HAEMORRHAGE [None]
  - LOSS OF CONSCIOUSNESS [None]
  - ARTHROPATHY [None]
  - NAIL DISORDER [None]
